FAERS Safety Report 8136177-4 (Version None)
Quarter: 2012Q1

REPORT INFORMATION
  Report Type: 
  Country: None (occurrence: None)
  Receive Date: 20120214
  Receipt Date: 20120208
  Transmission Date: 20120608
  Serious: Yes (Hospitalization)
  Sender: FDA-Public Use
  Company Number: FR-MERCK-1112FRA00107

PATIENT
  Age: 72 Year
  Sex: Male
  Weight: 62 kg

DRUGS (10)
  1. NICORANDIL [Concomitant]
     Route: 048
  2. CLOPIDOGREL BISULFATE [Concomitant]
     Route: 048
  3. JANUVIA [Suspect]
     Indication: TYPE 2 DIABETES MELLITUS
     Route: 048
     Dates: start: 20110930, end: 20111116
  4. PERINDOPRIL ERBUMINE [Concomitant]
     Route: 048
  5. JANUVIA [Suspect]
     Route: 048
     Dates: start: 20120126
  6. BROMAZEPAM [Concomitant]
     Route: 048
  7. ATENOLOL [Concomitant]
     Route: 048
  8. ASPIRIN LYSINE [Concomitant]
     Route: 048
  9. PANTOPRAZOLE SODIUM [Concomitant]
     Route: 048
  10. ATORVASTATIN CALCIUM [Concomitant]
     Route: 048

REACTIONS (2)
  - MASTOIDITIS [None]
  - EAR INFECTION [None]
